FAERS Safety Report 21357548 (Version 1)
Quarter: 2022Q3

REPORT INFORMATION
  Report Type: Spontaneous
  Country: US (occurrence: US)
  Receive Date: 20220921
  Receipt Date: 20220921
  Transmission Date: 20221026
  Serious: Yes (Other)
  Sender: FDA-Public Use
  Company Number: US-HRAPH01-2022001031

PATIENT
  Age: 33 Year
  Sex: Female
  Weight: 99.8 kg

DRUGS (4)
  1. ELLA [Suspect]
     Active Substance: ULIPRISTAL ACETATE
     Indication: Post coital contraception
     Dosage: 1 TABLET OF 30 MG
     Route: 048
     Dates: start: 20220715, end: 20220715
  2. ELLA [Suspect]
     Active Substance: ULIPRISTAL ACETATE
     Indication: Post coital contraception
     Dosage: 1 TABLET OF 30 MG
     Route: 048
     Dates: start: 20220815, end: 20220815
  3. ELLA [Suspect]
     Active Substance: ULIPRISTAL ACETATE
     Indication: Post coital contraception
     Dosage: 1 TABLET OF 30 MG
     Route: 048
     Dates: start: 20220912, end: 20220912
  4. WELLBUTRIN SR [Concomitant]
     Active Substance: BUPROPION HYDROCHLORIDE
     Indication: Depression
     Dosage: 100 MG TAKEN ONCE OR TWICE DAILY
     Dates: start: 202204

REACTIONS (1)
  - Rectal haemorrhage [Recovered/Resolved]

NARRATIVE: CASE EVENT DATE: 20220715
